FAERS Safety Report 8347079-2 (Version None)
Quarter: 2012Q2

REPORT INFORMATION
  Report Type: 
  Country: None (occurrence: None)
  Receive Date: 20120509
  Receipt Date: 20120504
  Transmission Date: 20120825
  Serious: Yes (Death, Hospitalization)
  Sender: FDA-Public Use
  Company Number: TN-SANOFI-AVENTIS-2012SA031721

PATIENT
  Age: 66 Year
  Sex: Male

DRUGS (6)
  1. ATORVASTATIN [Concomitant]
     Route: 048
     Dates: end: 20120425
  2. PLAVIX [Suspect]
     Indication: ACUTE CORONARY SYNDROME
     Route: 048
     Dates: start: 20111208, end: 20120425
  3. PLAVIX [Suspect]
     Indication: STENT PLACEMENT
     Route: 048
     Dates: start: 20111208, end: 20120425
  4. INSULATARD NPH HUMAN [Concomitant]
     Route: 058
     Dates: end: 20120425
  5. LASIX [Concomitant]
     Route: 048
     Dates: end: 20120425
  6. APROVEL [Concomitant]
     Route: 048
     Dates: end: 20120425

REACTIONS (1)
  - DYSPNOEA [None]
